FAERS Safety Report 9222288 (Version 1)
Quarter: 2013Q1

REPORT INFORMATION
  Report Type: Spontaneous
  Country: US (occurrence: None)
  Receive Date: 20120914
  Receipt Date: 20120914
  Transmission Date: 20140127
  Serious: No
  Sender: FDA-Public Use
  Company Number: JPI-P-020789

PATIENT
  Age: 47 Year
  Sex: Female
  Weight: 77.11 kg

DRUGS (6)
  1. XYREM [Suspect]
     Indication: NARCOLEPSY
     Route: 048
     Dates: start: 20120405
  2. COZAAR (LOSARTAN) [Concomitant]
  3. LASIX (FUROSEMIDE) [Concomitant]
  4. INTEGRA PLUS (FERROUS FUMARATE) [Concomitant]
  5. TOPAMAX (TOPIRAMATE) [Concomitant]
  6. CYMBALTA (DULOXETINE) [Concomitant]

REACTIONS (8)
  - Suicidal ideation [None]
  - Depression [None]
  - Condition aggravated [None]
  - Crying [None]
  - Feeling drunk [None]
  - Dizziness [None]
  - Psychomotor hyperactivity [None]
  - Insomnia [None]
